FAERS Safety Report 21359260 (Version 2)
Quarter: 2022Q4

REPORT INFORMATION
  Report Type: Report from Study
  Country: FR (occurrence: None)
  Receive Date: 20220921
  Receipt Date: 20221024
  Transmission Date: 20230113
  Serious: Yes (Death, Other)
  Sender: FDA-Public Use
  Company Number: 2022A317179

PATIENT
  Sex: Female
  Weight: 57 kg

DRUGS (1)
  1. EVUSHELD [Suspect]
     Active Substance: CILGAVIMAB\TIXAGEVIMAB
     Indication: COVID-19 prophylaxis
     Dosage: TIXAGEVIMAB 150 MG/CILGAVIMAB 150 MG300.0MG ONCE/SINGLE ADMINISTRATION
     Route: 030
     Dates: start: 20220318, end: 20220318

REACTIONS (1)
  - Malignant neoplasm progression [Fatal]
